FAERS Safety Report 26101574 (Version 1)
Quarter: 2025Q4

REPORT INFORMATION
  Report Type: Spontaneous
  Country: GB (occurrence: GB)
  Receive Date: 20251128
  Receipt Date: 20251128
  Transmission Date: 20260118
  Serious: Yes (Other)
  Sender: RANBAXY
  Company Number: GB-MHRA-MED-202511161206063190-LYMRW

PATIENT
  Age: 56 Year
  Sex: Female
  Weight: 73 kg

DRUGS (1)
  1. CIPROFLOXACIN [Suspect]
     Active Substance: CIPROFLOXACIN
     Indication: Urinary tract infection
     Dosage: 500 MILLIGRAM, BID, 500MG EVERY 12 HOURS
     Route: 065
     Dates: start: 20251107, end: 20251111

REACTIONS (1)
  - White blood cell count [Recovering/Resolving]

NARRATIVE: CASE EVENT DATE: 20251110
